FAERS Safety Report 6845676-4 (Version None)
Quarter: 2010Q3

REPORT INFORMATION
  Report Type: 
  Country: None (occurrence: None)
  Receive Date: 20100715
  Receipt Date: 20070824
  Transmission Date: 20110219
  Serious: No
  Sender: FDA-Public Use
  Company Number: US-PFIZER INC-2007071344

PATIENT
  Sex: Female
  Weight: 74.1 kg

DRUGS (2)
  1. CHANTIX [Suspect]
     Indication: SMOKING CESSATION THERAPY
     Dates: start: 20070816
  2. VITAMINS [Concomitant]

REACTIONS (3)
  - CONSTIPATION [None]
  - INCORRECT DOSE ADMINISTERED [None]
  - TOBACCO USER [None]
